FAERS Safety Report 5699026-X (Version None)
Quarter: 2008Q2

REPORT INFORMATION
  Report Type: 
  Country: None (occurrence: None)
  Receive Date: 20080408
  Receipt Date: 20061011
  Transmission Date: 20081010
  Serious: No
  Sender: FDA-Public Use
  Company Number: US-BAYER-US-2006-030565

PATIENT
  Age: 60 Year
  Sex: Female

DRUGS (2)
  1. ULTRAVIST 300 [Suspect]
     Indication: COMPUTERISED TOMOGRAM ABDOMEN
     Dosage: UNIT DOSE: 100 ML
     Route: 042
     Dates: start: 20060814, end: 20060814
  2. BARIUM [Concomitant]
     Route: 048
     Dates: start: 20060814, end: 20060814

REACTIONS (2)
  - PRURITUS [None]
  - URTICARIA [None]
